FAERS Safety Report 19065618 (Version 1)
Quarter: 2021Q1

REPORT INFORMATION
  Report Type: Spontaneous
  Country: US (occurrence: US)
  Receive Date: 20210327
  Receipt Date: 20210327
  Transmission Date: 20210420
  Serious: Yes (Death)
  Sender: FDA-Public Use
  Company Number: NVSC2021US070342

PATIENT
  Age: 70 Year
  Sex: Female

DRUGS (1)
  1. PIQRAY [Suspect]
     Active Substance: ALPELISIB
     Indication: GALLBLADDER CANCER
     Dosage: 300 MG, QD
     Route: 048
     Dates: start: 20190812

REACTIONS (3)
  - Gastrointestinal haemorrhage [Fatal]
  - Vascular pseudoaneurysm [Fatal]
  - Product use in unapproved indication [Unknown]

NARRATIVE: CASE EVENT DATE: 20190812
